FAERS Safety Report 13044177 (Version 1)
Quarter: 2016Q4

REPORT INFORMATION
  Report Type: Spontaneous
  Country: US (occurrence: US)
  Receive Date: 20161219
  Receipt Date: 20161219
  Transmission Date: 20170207
  Serious: No
  Sender: FDA-Public Use
  Company Number: None

PATIENT
  Age: 73 Year
  Sex: Male
  Weight: 155.13 kg

DRUGS (1)
  1. CEFEPIME 1GM PPX SAGENT [Suspect]
     Active Substance: CEFEPIME HYDROCHLORIDE
     Indication: CELLULITIS
     Route: 042
     Dates: start: 20160928, end: 20161004

REACTIONS (1)
  - Rash [None]

NARRATIVE: CASE EVENT DATE: 20160930
